FAERS Safety Report 8841086 (Version 2)
Quarter: 2015Q2

REPORT INFORMATION
  Report Type: Spontaneous
  Country: US (occurrence: US)
  Receive Date: 20121015
  Receipt Date: 20150428
  Transmission Date: 20150821
  Serious: Yes (Congenital Anomaly, Other)
  Sender: FDA-Public Use
  Company Number: US-ELI_LILLY_AND_COMPANY-US201210002826

PATIENT

DRUGS (6)
  1. IRON                               /00023516/ [Concomitant]
     Route: 064
  2. FLORINEF ACETATE [Concomitant]
     Active Substance: FLUDROCORTISONE ACETATE
     Route: 064
  3. NEURONTIN [Concomitant]
     Active Substance: GABAPENTIN
     Route: 064
  4. PERCOCET [Concomitant]
     Active Substance: ACETAMINOPHEN\OXYCODONE HYDROCHLORIDE
     Route: 064
  5. PROZAC [Suspect]
     Active Substance: FLUOXETINE HYDROCHLORIDE
     Dosage: 1 DF, UNKNOWN
     Route: 064
  6. PRENATAL VITAMINS                  /08195401/ [Concomitant]
     Route: 064

REACTIONS (6)
  - Exposure via father [Recovered/Resolved]
  - Atrioventricular septal defect [Recovered/Resolved]
  - Congenital mitral valve incompetence [Unknown]
  - Apnoea neonatal [Recovered/Resolved]
  - Seizure [Unknown]
  - Laevocardia [Unknown]
